FAERS Safety Report 5971049-2 (Version None)
Quarter: 2008Q4

REPORT INFORMATION
  Report Type: 
  Country: None (occurrence: None)
  Receive Date: 20081128
  Receipt Date: 20081120
  Transmission Date: 20090506
  Serious: Yes (Other)
  Sender: FDA-Public Use
  Company Number: PHBS2008US06429

PATIENT
  Age: 69 Year
  Sex: Female

DRUGS (6)
  1. HYDRALAZINE HCL [Suspect]
  2. METOPROLOL TARTRATE [Suspect]
  3. TEMAZEPAM [Concomitant]
  4. CLONIDINE HCL [Concomitant]
  5. IRON [Concomitant]
  6. SERTRALINE [Concomitant]

REACTIONS (11)
  - ACUTE FEBRILE NEUTROPHILIC DERMATOSIS [None]
  - ANAEMIA [None]
  - GLOMERULONEPHRITIS RAPIDLY PROGRESSIVE [None]
  - HAEMATURIA [None]
  - PERICARDIAL EFFUSION [None]
  - RASH [None]
  - RASH ERYTHEMATOUS [None]
  - RASH PAPULAR [None]
  - SKIN LESION [None]
  - SKIN PLAQUE [None]
  - WEGENER'S GRANULOMATOSIS [None]
